FAERS Safety Report 20430798 (Version 1)
Quarter: 2022Q1

REPORT INFORMATION
  Report Type: Report from Study
  Country: FR (occurrence: FR)
  Receive Date: 20220204
  Receipt Date: 20220204
  Transmission Date: 20220423
  Serious: Yes (Other)
  Sender: FDA-Public Use
  Company Number: FR-SERVIER-S21005207

PATIENT

DRUGS (7)
  1. PEGASPARGASE [Suspect]
     Active Substance: PEGASPARGASE
     Indication: Acute lymphocytic leukaemia
     Dosage: 3127.5 IU, QD ON D15 AND D43
     Route: 042
     Dates: start: 20210312, end: 20210420
  2. TN UNSPECIFIED [Concomitant]
     Indication: Acute lymphocytic leukaemia
     Dosage: 1100 MG ,ON D1 AND D29
     Route: 042
     Dates: start: 20210226
  3. TN UNSPECIFIED [Concomitant]
     Indication: Acute lymphocytic leukaemia
     Dosage: 1.6 MG ON D15, D22, D43, AND D50
     Route: 042
     Dates: start: 20210312
  4. TN UNSPECIFIED [Concomitant]
     Indication: Acute lymphocytic leukaemia
     Dosage: 86.2 MG ON D3 TO D6, D10 TO D13, AND ON D31
     Route: 042
     Dates: start: 20210301
  5. TN UNSPECIFIED [Concomitant]
     Dosage: 30 MG ON D3 AND D31
     Route: 037
     Dates: start: 20210301
  6. TN UNSPECIFIED [Concomitant]
     Indication: Acute lymphocytic leukaemia
     Dosage: 15 MG ON D3 AND D31
     Route: 037
     Dates: start: 20210301
  7. TN UNSPECIFIED [Concomitant]
     Indication: Acute lymphocytic leukaemia
     Dosage: 15 MG ON D3 AND D31
     Route: 037
     Dates: start: 20210301

REACTIONS (2)
  - Drug hypersensitivity [Recovered/Resolved]
  - Arthritis infective [Recovered/Resolved]

NARRATIVE: CASE EVENT DATE: 20210324
